FAERS Safety Report 9553444 (Version 2)
Quarter: 2013Q4

REPORT INFORMATION
  Report Type: Spontaneous
  Country: IE (occurrence: IE)
  Receive Date: 20130925
  Receipt Date: 20131108
  Transmission Date: 20140711
  Serious: Yes (Disabling, Other)
  Sender: FDA-Public Use
  Company Number: IE-PFIZER INC-2013273213

PATIENT
  Age: 61 Year
  Sex: Female
  Weight: 86 kg

DRUGS (4)
  1. LYRICA [Suspect]
     Indication: ANXIETY
     Dosage: 300 MG, 2X/DAY
     Route: 048
     Dates: start: 201302, end: 201305
  2. LYRICA [Suspect]
     Dosage: 400 MG, UNK
     Route: 048
     Dates: start: 201307
  3. QUETIAPINE [Concomitant]
     Indication: AFFECTIVE DISORDER
     Dosage: 400 MG, UNK
     Route: 048
     Dates: start: 2010
  4. DIAZEPAM [Concomitant]
     Indication: AFFECTIVE DISORDER
     Dosage: 5 MG, 3X/DAY
     Route: 048
     Dates: start: 2010

REACTIONS (6)
  - Swelling [Not Recovered/Not Resolved]
  - Body surface area increased [Not Recovered/Not Resolved]
  - Face oedema [Not Recovered/Not Resolved]
  - Weight increased [Not Recovered/Not Resolved]
  - Abdominal distension [Not Recovered/Not Resolved]
  - Oedema peripheral [Not Recovered/Not Resolved]
